FAERS Safety Report 24039830 (Version 1)
Quarter: 2024Q3

REPORT INFORMATION
  Report Type: Report from Study
  Country: CA (occurrence: CA)
  Receive Date: 20240702
  Receipt Date: 20240702
  Transmission Date: 20241017
  Serious: Yes (Other)
  Sender: ABBVIE
  Company Number: CA-ABBVIE-5753439

PATIENT
  Sex: Female

DRUGS (1)
  1. RINVOQ [Suspect]
     Active Substance: UPADACITINIB
     Indication: Rheumatoid arthritis
     Route: 048
     Dates: start: 20220822

REACTIONS (5)
  - Pulmonary fibrosis [Unknown]
  - Road traffic accident [Unknown]
  - Fibrosis [Unknown]
  - Bronchitis [Unknown]
  - Contusion [Unknown]
